FAERS Safety Report 13980315 (Version 1)
Quarter: 2017Q3

REPORT INFORMATION
  Report Type: Spontaneous
  Country: DE (occurrence: DE)
  Receive Date: 20170917
  Receipt Date: 20170917
  Transmission Date: 20171128
  Serious: Yes (Hospitalization, Other)
  Sender: FDA-Public Use
  Company Number: DE-AMGEN-DEUSP2017139903

PATIENT
  Sex: Male

DRUGS (18)
  1. PEGFILGRASTIM [Suspect]
     Active Substance: PEGFILGRASTIM
     Indication: B-CELL LYMPHOMA
     Dosage: 6 MG, QD
     Route: 058
     Dates: start: 20120725, end: 20120809
  2. RITUXIMAB. [Suspect]
     Active Substance: RITUXIMAB
     Indication: B-CELL LYMPHOMA
     Dosage: 375 MG/M2, QD X6
     Route: 042
     Dates: start: 20120515
  3. ACYCLOVIR. [Concomitant]
     Active Substance: ACYCLOVIR
     Dosage: 400 MG, QD
     Route: 048
     Dates: start: 20120724
  4. VINCRISTINE [Suspect]
     Active Substance: VINCRISTINE
     Dosage: UNK
     Route: 042
     Dates: start: 20120725
  5. DOXORUBICIN [Suspect]
     Active Substance: DOXORUBICIN
     Indication: B-CELL LYMPHOMA
     Dosage: 50 MG/M2, QD X4
     Route: 042
     Dates: start: 20120724
  6. DOXORUBICIN [Suspect]
     Active Substance: DOXORUBICIN
     Dosage: 1350 MG, QD
     Route: 042
     Dates: start: 20120725
  7. CLEXANE [Concomitant]
     Active Substance: ENOXAPARIN SODIUM
     Dosage: UNK
     Dates: start: 20120807
  8. PANTOPRAZOL [Concomitant]
     Active Substance: PANTOPRAZOLE SODIUM
     Dosage: 40 MG, QD
     Route: 048
     Dates: start: 20120724
  9. PREDNISONE. [Suspect]
     Active Substance: PREDNISONE
     Indication: B-CELL LYMPHOMA
     Dosage: 100 MG/M2, QD X4
     Route: 048
     Dates: start: 20120724
  10. CYCLOPHOSPHAMIDE. [Suspect]
     Active Substance: CYCLOPHOSPHAMIDE
     Indication: B-CELL LYMPHOMA
     Dosage: 750 MG/M2, UNK X4
     Route: 042
     Dates: start: 20120724
  11. CYCLOPHOSPHAMIDE. [Suspect]
     Active Substance: CYCLOPHOSPHAMIDE
     Dosage: UNK
     Route: 042
     Dates: start: 20120725
  12. TRIMETHOPRIM SULFAMETHOXAZOLE [Concomitant]
     Active Substance: SULFAMETHOXAZOLE\TRIMETHOPRIM
     Dosage: 960 MG, 2 TIMES/WK
     Route: 048
     Dates: start: 20120724
  13. LISINOPRIL. [Concomitant]
     Active Substance: LISINOPRIL
     Dosage: 5 MG, QD
     Route: 048
     Dates: start: 20120724
  14. LENOGRASTIM [Suspect]
     Active Substance: LENOGRASTIM
     Indication: B-CELL LYMPHOMA
     Dosage: 34 MUG, UNK X4
     Route: 058
     Dates: start: 20120724
  15. VINCRISTINE [Suspect]
     Active Substance: VINCRISTINE
     Indication: B-CELL LYMPHOMA
     Dosage: 1.4 MG/M2, UNK X4
     Route: 042
     Dates: start: 20120724
  16. FENOFIBRAT [Concomitant]
     Active Substance: FENOFIBRATE
     Dosage: 10 MG, QD
     Route: 048
     Dates: start: 20120724
  17. PREDNISONE. [Suspect]
     Active Substance: PREDNISONE
     Dosage: 100 MG, QD
     Route: 048
     Dates: start: 20120725, end: 20120729
  18. LENOGRASTIM [Suspect]
     Active Substance: LENOGRASTIM
     Dosage: UNK
     Route: 058
     Dates: start: 20120728

REACTIONS (2)
  - Pulmonary embolism [Recovered/Resolved]
  - Femur fracture [Recovered/Resolved]

NARRATIVE: CASE EVENT DATE: 20120807
